FAERS Safety Report 7788329-0 (Version None)
Quarter: 2011Q3

REPORT INFORMATION
  Report Type: 
  Country: None (occurrence: None)
  Receive Date: 20110929
  Receipt Date: 20110929
  Transmission Date: 20111222
  Serious: Yes (Life-Threatening, Hospitalization)
  Sender: FDA-Public Use
  Company Number: None

PATIENT
  Sex: Female
  Weight: 69.8539 kg

DRUGS (1)
  1. DEXILANT [Suspect]
     Indication: GASTROOESOPHAGEAL REFLUX DISEASE
     Dosage: 60 MG. CAP ONCE A DAY ORALLY
     Route: 048
     Dates: start: 20110803

REACTIONS (2)
  - GASTROINTESTINAL BACTERIAL INFECTION [None]
  - ELECTROLYTE IMBALANCE [None]
